FAERS Safety Report 4518711-6 (Version None)
Quarter: 2004Q4

REPORT INFORMATION
  Report Type: 
  Country: None (occurrence: None)
  Receive Date: 20041201
  Receipt Date: 20041125
  Transmission Date: 20050328
  Serious: Yes (Death)
  Sender: FDA-Public Use
  Company Number: 2004-115340-NL

PATIENT
  Age: 67 Year
  Sex: Female

DRUGS (4)
  1. MIRTAZAPINE [Suspect]
     Dosage: ORAL
     Route: 048
     Dates: start: 20021120, end: 20030115
  2. MIRTAZAPINE [Suspect]
     Dosage: ORAL
     Route: 048
     Dates: start: 20030116, end: 20030120
  3. LITHIUM [Concomitant]
  4. OXAZEPAM [Concomitant]

REACTIONS (5)
  - ACCIDENTAL DEATH [None]
  - DROWNING [None]
  - MALAISE [None]
  - SOMNOLENCE [None]
  - SYNCOPE [None]
